FAERS Safety Report 9932881 (Version 1)
Quarter: 2014Q1

REPORT INFORMATION
  Report Type: Spontaneous
  Country: US (occurrence: US)
  Receive Date: 20140228
  Receipt Date: 20140228
  Transmission Date: 20141002
  Serious: No
  Sender: FDA-Public Use
  Company Number: US-GLAXOSMITHKLINE-A1037012A

PATIENT
  Age: 27 Year
  Sex: Female

DRUGS (6)
  1. LAMICTAL [Suspect]
     Indication: AFFECTIVE DISORDER
     Dosage: 100MG PER DAY
     Route: 048
     Dates: start: 201302
  2. LAMOTRIGINE [Suspect]
     Indication: AFFECTIVE DISORDER
     Dosage: 100MG PER DAY
     Route: 048
     Dates: start: 20130711, end: 20130720
  3. ZOLOFT [Suspect]
  4. FISH OIL SUPPLEMENTS [Concomitant]
  5. UNKNOWN SUPPLEMENT [Concomitant]
  6. MULTIVITAMIN [Concomitant]

REACTIONS (4)
  - Tachyphrenia [Recovering/Resolving]
  - Mental disorder [Unknown]
  - Drug administration error [Unknown]
  - Drug ineffective [Unknown]
